FAERS Safety Report 10310410 (Version 2)
Quarter: 2014Q4

REPORT INFORMATION
  Report Type: Report from Study
  Country: FR (occurrence: FR)
  Receive Date: 20140717
  Receipt Date: 20141028
  Transmission Date: 20150528
  Serious: Yes (Hospitalization)
  Sender: FDA-Public Use
  Company Number: FR-ROCHE-1433923

PATIENT
  Age: 61 Year
  Sex: Male
  Weight: 53 kg

DRUGS (4)
  1. BEVACIZUMAB [Suspect]
     Active Substance: BEVACIZUMAB
     Indication: COLORECTAL CANCER METASTATIC
     Route: 065
     Dates: start: 20131203, end: 20140325
  2. FOLINIC ACID [Concomitant]
     Active Substance: LEUCOVORIN
     Route: 065
     Dates: start: 20131203, end: 20140325
  3. FLUOROURACIL. [Suspect]
     Active Substance: FLUOROURACIL
     Indication: COLORECTAL CANCER METASTATIC
     Route: 065
     Dates: start: 20131203, end: 20140325
  4. OXALIPLATIN. [Concomitant]
     Active Substance: OXALIPLATIN
     Route: 065
     Dates: start: 20131203, end: 20140325

REACTIONS (1)
  - Coronary artery insufficiency [Recovered/Resolved]

NARRATIVE: CASE EVENT DATE: 20140327
